FAERS Safety Report 15853409 (Version 1)
Quarter: 2019Q1

REPORT INFORMATION
  Report Type: Spontaneous
  Country: MK (occurrence: MK)
  Receive Date: 20190122
  Receipt Date: 20190122
  Transmission Date: 20190417
  Serious: Yes (Other)
  Sender: FDA-Public Use
  Company Number: MK-ENDO PHARMACEUTICALS INC-2019-100531

PATIENT
  Age: 23 Year
  Sex: Female

DRUGS (2)
  1. CARBAMAZEPINE. [Concomitant]
     Active Substance: CARBAMAZEPINE
     Indication: EPILEPSY
     Dosage: UNK UNKNOWN, UNKNOWN
     Route: 065
  2. LEVETIRACETAM. [Suspect]
     Active Substance: LEVETIRACETAM
     Indication: EPILEPSY
     Dosage: MAX DOSE 2000 MG, DAILY
     Route: 065
     Dates: start: 2016

REACTIONS (4)
  - Tonic convulsion [Unknown]
  - Partial seizures [Unknown]
  - Seizure [Recovered/Resolved]
  - Myoclonic epilepsy [Unknown]
